FAERS Safety Report 14104511 (Version 3)
Quarter: 2018Q1

REPORT INFORMATION
  Report Type: Spontaneous
  Country: FR (occurrence: FR)
  Receive Date: 20171018
  Receipt Date: 20180108
  Transmission Date: 20180508
  Serious: Yes (Hospitalization, Other)
  Sender: FDA-Public Use
  Company Number: FR-SA-2017SA200857

PATIENT
  Age: 42 Year
  Sex: Male

DRUGS (16)
  1. OXALIPLATIN. [Suspect]
     Active Substance: OXALIPLATIN
     Indication: OESOPHAGEAL ADENOCARCINOMA
     Dosage: 85MG/M2 (190MG OF TOTAL DOSE IN 500ML OF 5% GLUCOSE)
     Route: 042
  2. OXALIPLATIN. [Suspect]
     Active Substance: OXALIPLATIN
     Indication: CHEMOTHERAPY
     Dosage: 85MG/M2 (190MG OF TOTAL DOSE IN 500ML OF 5% GLUCOSE)
     Route: 042
  3. GLUCOSE [Concomitant]
     Active Substance: DEXTROSE
     Route: 042
  4. FLUOROURACIL. [Suspect]
     Active Substance: FLUOROURACIL
     Indication: CHEMOTHERAPY
     Dosage: 1,200 MG/M2, I.E. 5,500 MG TOTAL DOSE IN 140 ML OF NACL
     Route: 042
  5. OXALIPLATIN. [Suspect]
     Active Substance: OXALIPLATIN
     Indication: METASTASES TO LIVER
     Dosage: 85MG/M2 (190MG OF TOTAL DOSE IN 500ML OF 5% GLUCOSE)
     Route: 042
  6. FLUOROURACIL. [Suspect]
     Active Substance: FLUOROURACIL
     Indication: OESOPHAGEAL ADENOCARCINOMA
     Dosage: 400 MG/M2, I.E. 920 MG TOTAL DOSE IN BOLUS IN 100 ML OF 5% GLUCOSE?SOLUTION
     Route: 040
  7. GLUCOSE [Concomitant]
     Active Substance: DEXTROSE
     Route: 040
  8. SODIUM CHLORIDE. [Concomitant]
     Active Substance: SODIUM CHLORIDE
     Route: 042
  9. OXALIPLATIN. [Suspect]
     Active Substance: OXALIPLATIN
     Indication: OESOPHAGEAL ADENOCARCINOMA
     Route: 042
  10. OXALIPLATIN. [Suspect]
     Active Substance: OXALIPLATIN
     Indication: METASTASES TO LIVER
     Route: 042
  11. OXALIPLATIN. [Suspect]
     Active Substance: OXALIPLATIN
     Indication: CHEMOTHERAPY
     Route: 042
  12. FOLINIC ACID [Concomitant]
     Active Substance: LEUCOVORIN
     Indication: OESOPHAGEAL ADENOCARCINOMA
     Route: 042
  13. FOLINIC ACID [Concomitant]
     Active Substance: LEUCOVORIN
     Indication: METASTASES TO LIVER
     Route: 042
  14. FOLINIC ACID [Concomitant]
     Active Substance: LEUCOVORIN
     Indication: GASTROINTESTINAL CANCER METASTATIC
     Route: 042
  15. FLUOROURACIL. [Suspect]
     Active Substance: FLUOROURACIL
     Indication: OESOPHAGEAL ADENOCARCINOMA
     Dosage: 1,200 MG/M2, I.E. 5,500 MG TOTAL DOSE IN 140 ML OF NACL
     Route: 042
  16. FLUOROURACIL. [Suspect]
     Active Substance: FLUOROURACIL
     Indication: CHEMOTHERAPY
     Dosage: 400 MG/M2, I.E. 920 MG TOTAL DOSE IN BOLUS IN 100 ML OF 5% GLUCOSE?SOLUTION
     Route: 040

REACTIONS (9)
  - Cardiotoxicity [Recovered/Resolved]
  - Chest discomfort [Unknown]
  - Pain [Recovered/Resolved]
  - Bronchospasm [Recovered/Resolved]
  - Cough [Recovered/Resolved]
  - Dysphonia [Recovered/Resolved]
  - Toxicity to various agents [Unknown]
  - Catheter site extravasation [Recovered/Resolved]
  - Vocal cord paralysis [Unknown]
